FAERS Safety Report 9323489 (Version 1)
Quarter: 2013Q2

REPORT INFORMATION
  Report Type: Spontaneous
  Country: US (occurrence: US)
  Receive Date: 20130603
  Receipt Date: 20130603
  Transmission Date: 20140414
  Serious: Yes (Other)
  Sender: FDA-Public Use
  Company Number: US-JNJFOC-20130516283

PATIENT
  Sex: Female

DRUGS (9)
  1. XARELTO [Suspect]
     Indication: THROMBOSIS PROPHYLAXIS
     Route: 048
  2. XARELTO [Suspect]
     Indication: KNEE ARTHROPLASTY
     Route: 048
  3. NAPROSYN [Concomitant]
     Route: 065
  4. TOPROL [Concomitant]
     Route: 065
  5. BABY ASPIRIN [Concomitant]
     Route: 065
  6. DYAZIDE [Concomitant]
     Route: 065
  7. IMDUR [Concomitant]
     Route: 065
  8. EFFEXOR [Concomitant]
     Route: 065
  9. PERCOCET [Concomitant]
     Route: 065

REACTIONS (1)
  - Thrombosis [Unknown]
